FAERS Safety Report 4737345-1 (Version None)
Quarter: 2005Q3

REPORT INFORMATION
  Report Type: 
  Country: None (occurrence: None)
  Receive Date: 20050805
  Receipt Date: 20050801
  Transmission Date: 20060218
  Serious: Yes (Disabling, Other)
  Sender: FDA-Public Use
  Company Number: 2005088860

PATIENT
  Sex: Male
  Weight: 72.5755 kg

DRUGS (5)
  1. LIPITOR [Suspect]
     Indication: BLOOD CHOLESTEROL INCREASED
     Dosage: 10 MG (10 MG, 1 IN 1 D), ORAL
     Route: 048
     Dates: end: 20050611
  2. LISNOPRIL (LISINOPRIL) [Concomitant]
  3. ACETYLSALICYLIC ACID SRT [Concomitant]
  4. VITAMIN B COMPLEX CAP [Concomitant]
  5. ATENOLOL [Concomitant]

REACTIONS (12)
  - ASTHENIA [None]
  - BURNING SENSATION [None]
  - CAROTID ARTERY OCCLUSION [None]
  - CAROTID ARTERY STENOSIS [None]
  - CARPAL TUNNEL SYNDROME [None]
  - CONDITION AGGRAVATED [None]
  - CUBITAL TUNNEL SYNDROME [None]
  - DRUG TOXICITY [None]
  - HYPOAESTHESIA [None]
  - NEUROPATHY PERIPHERAL [None]
  - PROCEDURAL COMPLICATION [None]
  - SURGICAL PROCEDURE REPEATED [None]
